FAERS Safety Report 5067055-5 (Version None)
Quarter: 2006Q3

REPORT INFORMATION
  Report Type: 
  Country: None (occurrence: None)
  Receive Date: 20060727
  Receipt Date: 20060719
  Transmission Date: 20061208
  Serious: Yes (Death)
  Sender: FDA-Public Use
  Company Number: 2006-BP-08307RO

PATIENT
  Age: 38 Year
  Sex: Male

DRUGS (5)
  1. DISKETS DISPERSIBLE TABLETS (METHADONE HCL TABLETS USP), 40 MG (METHAD [Suspect]
     Indication: PAIN
     Dosage: TAKE 1/4 TABLET 3 TO 4 TIMES A DAY (40 MG, AS REQUIRED), PO
     Route: 048
     Dates: start: 20060422, end: 20060423
  2. VERAPAMIL [Concomitant]
  3. KLONOPIN [Concomitant]
  4. PREDNISONE TAB [Concomitant]
  5. ALBUTEROL [Concomitant]

REACTIONS (5)
  - ASPIRATION [None]
  - ASTHMA [None]
  - DRUG TOXICITY [None]
  - LOSS OF CONSCIOUSNESS [None]
  - PULMONARY OEDEMA [None]
